FAERS Safety Report 9079887 (Version 1)
Quarter: 2013Q1

REPORT INFORMATION
  Report Type: Spontaneous
  Country: US (occurrence: US)
  Receive Date: 20130215
  Receipt Date: 20130215
  Transmission Date: 20140127
  Serious: No
  Sender: FDA-Public Use
  Company Number: US-ASTRAZENECA-2013SE01323

PATIENT
  Age: 62 Year
  Sex: Male

DRUGS (3)
  1. SYMBICORT PMDI [Suspect]
     Dosage: 160 BID
     Route: 055
     Dates: start: 2012
  2. SYMBICORT PMDI [Suspect]
     Dosage: 3 SPRAYS DAILY
     Route: 055
  3. OTHER MEDICATIONS [Concomitant]

REACTIONS (4)
  - Wheezing [Unknown]
  - Malaise [Unknown]
  - Drug administration error [Unknown]
  - Intentional drug misuse [Unknown]
